FAERS Safety Report 7827622-X (Version None)
Quarter: 2011Q4

REPORT INFORMATION
  Report Type: 
  Country: None (occurrence: None)
  Receive Date: 20111020
  Receipt Date: 20110920
  Transmission Date: 20120403
  Serious: Yes (Hospitalization, Other)
  Sender: FDA-Public Use
  Company Number: DE-ELI_LILLY_AND_COMPANY-DE201106007004

PATIENT
  Age: 83 Year
  Sex: Male

DRUGS (6)
  1. MAGNESIUM [Concomitant]
  2. IBUPROFEN [Concomitant]
  3. FORTEO [Suspect]
     Indication: OSTEOPOROSIS
     Dosage: UNK, QD
     Route: 058
     Dates: start: 20100524
  4. CALCIUM CARBONATE [Concomitant]
     Dosage: UNK, BID
  5. TILIDIN [Concomitant]
  6. VITAMIN D [Concomitant]
     Dosage: UNK, BID

REACTIONS (4)
  - PAIN [None]
  - GASTROINTESTINAL DISORDER [None]
  - WEIGHT DECREASED [None]
  - ASTHENIA [None]
